FAERS Safety Report 8314676-X (Version None)
Quarter: 2012Q2

REPORT INFORMATION
  Report Type: 
  Country: None (occurrence: None)
  Receive Date: 20120426
  Receipt Date: 20120423
  Transmission Date: 20120825
  Serious: No
  Sender: FDA-Public Use
  Company Number: HR-ELI_LILLY_AND_COMPANY-HR201204007913

PATIENT
  Age: 64 Year
  Sex: Male

DRUGS (4)
  1. DIAZEPAM [Concomitant]
     Dosage: 5 MG, TID
     Route: 065
     Dates: start: 20120409
  2. VELAFAX [Concomitant]
     Dosage: 150 MG, QD
     Route: 065
     Dates: start: 20120409
  3. ZYPREXA [Suspect]
     Indication: DELUSION
     Dosage: 10 MG, QD
     Route: 065
     Dates: start: 20120409, end: 20120423
  4. KLAVOCIN [Concomitant]
     Dosage: 1 G, BID
     Route: 065
     Dates: start: 20120418

REACTIONS (4)
  - OEDEMA PERIPHERAL [None]
  - OSTEOARTHRITIS [None]
  - WHITE BLOOD CELL COUNT INCREASED [None]
  - C-REACTIVE PROTEIN INCREASED [None]
